FAERS Safety Report 11976577 (Version 1)
Quarter: 2016Q1

REPORT INFORMATION
  Report Type: Spontaneous
  Country: US (occurrence: US)
  Receive Date: 20160129
  Receipt Date: 20160129
  Transmission Date: 20160526
  Serious: Yes (Other)
  Sender: FDA-Public Use
  Company Number: US-ASTRAZENECA-2016SE07884

PATIENT
  Sex: Female

DRUGS (1)
  1. MOVANTIK [Suspect]
     Active Substance: NALOXEGOL OXALATE
     Indication: BACK PAIN
     Route: 048

REACTIONS (3)
  - Blood creatinine abnormal [Unknown]
  - Renal failure [Unknown]
  - Blood urea increased [Unknown]

NARRATIVE: CASE EVENT DATE: 20160101
